FAERS Safety Report 9562388 (Version 1)
Quarter: 2013Q3

REPORT INFORMATION
  Report Type: Spontaneous
  Country: GB (occurrence: GB)
  Receive Date: 20130927
  Receipt Date: 20130927
  Transmission Date: 20140515
  Serious: Yes (Other)
  Sender: FDA-Public Use
  Company Number: GB-ASTRAZENECA-2013SE70405

PATIENT
  Age: 85 Year
  Sex: Male
  Weight: 79.4 kg

DRUGS (4)
  1. ROSUVASTATIN [Suspect]
     Indication: HYPERTENSION
     Route: 048
     Dates: start: 20100524, end: 20121010
  2. AMLODIPINE [Concomitant]
  3. BENDROFLUMETHIAZIDE [Concomitant]
  4. CARDURA [Concomitant]

REACTIONS (1)
  - Nocturia [Recovered/Resolved]
